FAERS Safety Report 21023174 (Version 1)
Quarter: 2022Q2

REPORT INFORMATION
  Report Type: Spontaneous
  Country: US (occurrence: None)
  Receive Date: 20220629
  Receipt Date: 20220629
  Transmission Date: 20220720
  Serious: Yes (Hospitalization)
  Sender: FDA-Public Use
  Company Number: None

PATIENT
  Age: 73 Year
  Sex: Male

DRUGS (1)
  1. PRAVASTATIN SODIUM [Suspect]
     Active Substance: PRAVASTATIN SODIUM
     Dates: start: 20210427, end: 20220218

REACTIONS (3)
  - Dyspnoea [None]
  - Lupus-like syndrome [None]
  - Dressler^s syndrome [None]

NARRATIVE: CASE EVENT DATE: 20220218
